FAERS Safety Report 16004168 (Version 1)
Quarter: 2019Q1

REPORT INFORMATION
  Report Type: Spontaneous
  Country: NL (occurrence: NL)
  Receive Date: 20190226
  Receipt Date: 20190226
  Transmission Date: 20190418
  Serious: Yes (Hospitalization)
  Sender: FDA-Public Use
  Company Number: NL-TEVA-2019-NL-1015633

PATIENT
  Age: 73 Year
  Sex: Male
  Weight: 80 kg

DRUGS (6)
  1. METOPROLOL TABLET MET GEREGULEERDE AFGIFTE, 25 MG (MILLIGRAM) [Suspect]
     Active Substance: METOPROLOL
     Indication: PROPHYLAXIS
     Dosage: 25 MILLIGRAM DAILY; 1X PER DAY
     Dates: start: 20150107
  2. NITROFLINGUAL SPRAY 0.4 MG [Concomitant]
  3. ACETYLSALICYLZUUR 80 MG TABLET [Concomitant]
     Dosage: 80 MILLIGRAM DAILY; 1.D
  4. AMLODIPINE TABLET, 10 MG (MILLIGRAM) [Suspect]
     Active Substance: AMLODIPINE BESYLATE
     Indication: HYPERTENSION
     Dosage: 10 MILLIGRAM DAILY; 1.D
     Dates: start: 19880504
  5. GLICLAZIDE TABLET MGA 30 MG [Concomitant]
     Dosage: 30 MILLIGRAM DAILY; 1.D.
  6. METFORMINE TABLET 500 MG [Concomitant]
     Dosage: 2.D

REACTIONS (5)
  - Peripheral coldness [Not Recovered/Not Resolved]
  - Muscle spasms [Unknown]
  - Erectile dysfunction [Not Recovered/Not Resolved]
  - Blood glucose increased [Unknown]
  - Oedema peripheral [Not Recovered/Not Resolved]

NARRATIVE: CASE EVENT DATE: 20150120
